FAERS Safety Report 6223751-5 (Version None)
Quarter: 2009Q2

REPORT INFORMATION
  Report Type: 
  Country: None (occurrence: None)
  Receive Date: 20090611
  Receipt Date: 20090330
  Transmission Date: 20091009
  Serious: No
  Sender: FDA-Public Use
  Company Number: US-ABBOTT-09P-163-0498952-00

PATIENT
  Sex: Female
  Weight: 79.904 kg

DRUGS (15)
  1. HUMIRA [Suspect]
     Indication: RHEUMATOID ARTHRITIS
     Route: 058
     Dates: start: 20090101
  2. HUMIRA [Suspect]
     Route: 058
  3. PRAVASTATIN [Concomitant]
     Indication: BLOOD CHOLESTEROL INCREASED
  4. METOPROLOL SUCCINATE [Concomitant]
     Indication: HYPERTENSION
  5. ENALAPRIL [Concomitant]
     Indication: HYPERTENSION
  6. AMLODIPINE [Concomitant]
     Indication: HYPERTENSION
  7. METHOTREXATE [Concomitant]
     Indication: RHEUMATOID ARTHRITIS
  8. PREDNISONE [Concomitant]
     Indication: RHEUMATOID ARTHRITIS
  9. FOLIC ACID [Concomitant]
     Indication: RHEUMATOID ARTHRITIS
  10. DICLOFENAC SODIUM [Concomitant]
     Indication: INFLAMMATION
  11. NORCO [Concomitant]
     Indication: PAIN
  12. ATARAX [Concomitant]
     Indication: HYPERSENSITIVITY
  13. ENALAP HCTZ [Concomitant]
     Indication: HYPERTENSION
  14. ASPIRIN [Concomitant]
     Indication: CORONARY ARTERIAL STENT INSERTION
  15. ANTINAUSEA [Concomitant]
     Indication: NAUSEA
     Route: 030
     Dates: start: 20090101, end: 20090101

REACTIONS (5)
  - COUGH [None]
  - NAUSEA [None]
  - PNEUMONIA [None]
  - PYREXIA [None]
  - RHINORRHOEA [None]
